FAERS Safety Report 11147562 (Version 3)
Quarter: 2015Q3

REPORT INFORMATION
  Report Type: Spontaneous
  Country: US (occurrence: US)
  Receive Date: 20150529
  Receipt Date: 20150722
  Transmission Date: 20151125
  Serious: No
  Sender: FDA-Public Use
  Company Number: US-AMGEN-USASL2015051351

PATIENT
  Age: 70 Year
  Sex: Female

DRUGS (1)
  1. ENBREL [Suspect]
     Active Substance: ETANERCEPT
     Indication: RHEUMATOID ARTHRITIS
     Dosage: 50 MG, QWK
     Route: 065
     Dates: start: 20150511

REACTIONS (12)
  - Skin ulcer [Not Recovered/Not Resolved]
  - Pruritus [Not Recovered/Not Resolved]
  - Productive cough [Recovered/Resolved]
  - Gastrooesophageal reflux disease [Recovered/Resolved]
  - Erythema [Not Recovered/Not Resolved]
  - Soft tissue inflammation [Unknown]
  - Sensation of foreign body [Unknown]
  - Injection site rash [Unknown]
  - Insomnia [Unknown]
  - Injection site reaction [Unknown]
  - Injection site pruritus [Unknown]
  - Localised infection [Unknown]

NARRATIVE: CASE EVENT DATE: 2015
